FAERS Safety Report 24410322 (Version 1)
Quarter: 2024Q4

REPORT INFORMATION
  Report Type: Spontaneous
  Country: IT (occurrence: IT)
  Receive Date: 20241008
  Receipt Date: 20241008
  Transmission Date: 20250115
  Serious: Yes (Life-Threatening, Hospitalization, Other)
  Sender: RANBAXY
  Company Number: IT-SUN PHARMACEUTICAL INDUSTRIES LTD-2024RR-471931

PATIENT
  Age: 60 Year
  Sex: Male

DRUGS (12)
  1. CYCLOSPORINE [Interacting]
     Active Substance: CYCLOSPORINE
     Indication: Heart transplant
     Dosage: 175 MG, QD
     Route: 065
  2. CYCLOSPORINE [Interacting]
     Active Substance: CYCLOSPORINE
     Indication: Immunosuppression
  3. COLCHICINE [Interacting]
     Active Substance: COLCHICINE
     Indication: Gout
     Dosage: 1 MG, QD
     Route: 065
  4. LANSOPRAZOLE [Concomitant]
     Active Substance: LANSOPRAZOLE
     Indication: Product used for unknown indication
     Dosage: UNK
     Route: 065
  5. CLOPIDOGREL [Concomitant]
     Active Substance: CLOPIDOGREL BISULFATE
     Indication: Product used for unknown indication
     Dosage: UNK
     Route: 065
  6. SULFINPYRAZONE [Concomitant]
     Active Substance: SULFINPYRAZONE
     Indication: Product used for unknown indication
     Dosage: UNK
     Route: 065
  7. FUROSEMIDE [Concomitant]
     Active Substance: FUROSEMIDE
     Indication: Product used for unknown indication
     Dosage: UNK
     Route: 065
  8. METHYLDOPA [Concomitant]
     Active Substance: METHYLDOPA
     Indication: Product used for unknown indication
     Dosage: UNK
     Route: 065
  9. DARBEPOETIN ALFA [Concomitant]
     Active Substance: DARBEPOETIN ALFA
     Indication: Product used for unknown indication
     Dosage: UNK
     Route: 065
  10. CLONIDINE [Concomitant]
     Active Substance: CLONIDINE
     Indication: Product used for unknown indication
     Dosage: UNK
     Route: 065
  11. AMLODIPINE [Concomitant]
     Active Substance: AMLODIPINE BESYLATE
     Indication: Product used for unknown indication
     Dosage: UNK
     Route: 065
  12. RAMIPRIL [Concomitant]
     Active Substance: RAMIPRIL
     Indication: Product used for unknown indication
     Dosage: UNK
     Route: 065

REACTIONS (27)
  - Arthralgia [Unknown]
  - Arrhythmia [Recovered/Resolved]
  - Gout [Unknown]
  - Polyneuropathy [Recovered/Resolved]
  - Infection [Recovered/Resolved]
  - Diarrhoea [Recovered/Resolved]
  - Troponin I increased [Recovered/Resolved]
  - Dyspnoea [Recovered/Resolved]
  - Tachycardia [Recovered/Resolved]
  - Rhabdomyolysis [Recovered/Resolved]
  - Bundle branch block bilateral [Recovered/Resolved]
  - Arrhythmia supraventricular [Recovered/Resolved]
  - Vomiting [Recovered/Resolved]
  - Pyrexia [Recovered/Resolved]
  - Cardiotoxicity [Recovered/Resolved]
  - Hypocalcaemia [Unknown]
  - Oxygen saturation decreased [Recovered/Resolved]
  - Asthenia [Recovered/Resolved]
  - Multiple organ dysfunction syndrome [Recovered/Resolved]
  - Lung infiltration [Recovered/Resolved]
  - Myalgia [Recovered/Resolved]
  - Electrocardiogram ST segment depression [Recovered/Resolved]
  - Ejection fraction decreased [Recovered/Resolved]
  - Hepatic enzyme increased [Recovered/Resolved]
  - Liver injury [Recovered/Resolved]
  - Toxicity to various agents [Recovered/Resolved]
  - Neutropenia [Recovered/Resolved]
